FAERS Safety Report 24417433 (Version 5)
Quarter: 2025Q1

REPORT INFORMATION
  Report Type: Spontaneous
  Country: JP (occurrence: JP)
  Receive Date: 20241009
  Receipt Date: 20250305
  Transmission Date: 20250409
  Serious: Yes (Other)
  Sender: ELI LILLY AND COMPANY
  Company Number: JP-ELI_LILLY_AND_COMPANY-JP202410003273

PATIENT
  Age: 74 Year
  Sex: Male
  Weight: 60.9 kg

DRUGS (4)
  1. NECITUMUMAB [Suspect]
     Active Substance: NECITUMUMAB
     Indication: Lung squamous cell carcinoma recurrent
     Route: 041
     Dates: start: 20240926, end: 20250110
  2. GEMCITABINE HYDROCHLORIDE [Suspect]
     Active Substance: GEMCITABINE HYDROCHLORIDE
     Indication: Lung squamous cell carcinoma recurrent
     Route: 041
     Dates: start: 20240926, end: 20241205
  3. CISPLATIN [Suspect]
     Active Substance: CISPLATIN
     Indication: Lung squamous cell carcinoma recurrent
     Route: 042
     Dates: start: 20240926, end: 20241128
  4. MAGNESIUM SULFATE [Concomitant]
     Active Substance: MAGNESIUM SULFATE
     Indication: Electrolyte substitution therapy
     Route: 065
     Dates: start: 20240926, end: 20250110

REACTIONS (5)
  - Haematotoxicity [Recovered/Resolved]
  - Malignant neoplasm progression [Unknown]
  - Constipation [Recovered/Resolved]
  - Hypomagnesaemia [Not Recovered/Not Resolved]
  - Infusion related reaction [Recovered/Resolved]

NARRATIVE: CASE EVENT DATE: 20240926
